FAERS Safety Report 6747103-4 (Version None)
Quarter: 2010Q2

REPORT INFORMATION
  Report Type: 
  Country: None (occurrence: None)
  Receive Date: 20100526
  Receipt Date: 20100519
  Transmission Date: 20101027
  Serious: Yes (Other)
  Sender: FDA-Public Use
  Company Number: 2010SP015967

PATIENT
  Age: 57 Year
  Sex: Female

DRUGS (5)
  1. MIRTAZAPINE [Suspect]
     Indication: DEPRESSIVE SYMPTOM
     Dosage: 15 MG; QD; PO
     Route: 048
     Dates: start: 20100219, end: 20100220
  2. ROSUVASTATIN CALCIUM [Concomitant]
  3. BROTIZOLAM [Concomitant]
  4. IRBESARTAN [Concomitant]
  5. ETIZOLAM [Concomitant]

REACTIONS (6)
  - ASTHENIA [None]
  - DISTURBANCE IN ATTENTION [None]
  - DYSSTASIA [None]
  - GAIT DISTURBANCE [None]
  - HYPOAESTHESIA [None]
  - SENSORY LOSS [None]
